FAERS Safety Report 5533661-4 (Version None)
Quarter: 2007Q4

REPORT INFORMATION
  Report Type: 
  Country: None (occurrence: None)
  Receive Date: 20071204
  Receipt Date: 20071122
  Transmission Date: 20080405
  Serious: Yes (Hospitalization)
  Sender: FDA-Public Use
  Company Number: GB-BRISTOL-MYERS SQUIBB COMPANY-13479555

PATIENT
  Age: 26 Year
  Sex: Male

DRUGS (2)
  1. ABILIFY [Suspect]
     Indication: SCHIZOPHRENIA, PARANOID TYPE
     Dosage: 400MG ON -3-04, RED. TO 200MG ON 6-10-04, INCR. TO 400MG ON 9-11-04, INCR. TO 600MG ON 18-11-04.
     Route: 048
     Dates: start: 20041011, end: 20041206
  2. AMISULPRIDE [Concomitant]
     Dosage: 400MG ON -3-04, RED. TO 200MG ON 6-10-04, INCR. TO 400MG ON 9-11-04, INCR. TO 600MG ON 18-11-04.
     Route: 048
     Dates: start: 20041118

REACTIONS (3)
  - MOOD ALTERED [None]
  - PSYCHOTIC DISORDER [None]
  - SLEEP DISORDER [None]
